FAERS Safety Report 4636071-7 (Version None)
Quarter: 2005Q2

REPORT INFORMATION
  Report Type: 
  Country: None (occurrence: None)
  Receive Date: 20050415
  Receipt Date: 20030324
  Transmission Date: 20051028
  Serious: Yes (Hospitalization, Other)
  Sender: FDA-Public Use
  Company Number: US-BRISTOL-MYERS SQUIBB COMPANY-12203733

PATIENT
  Age: 50 Year
  Sex: Male

DRUGS (17)
  1. CISPLATIN [Suspect]
     Indication: NEOPLASM MALIGNANT
     Route: 042
     Dates: start: 20010205, end: 20010205
  2. CETUXIMAB [Suspect]
     Indication: NEOPLASM MALIGNANT
     Route: 042
     Dates: start: 20010411, end: 20010411
  3. CLARITIN [Concomitant]
     Dates: start: 19991121
  4. WELLBUTRIN [Concomitant]
     Dates: start: 19970101
  5. TRAZODONE HCL [Concomitant]
     Dates: start: 19970101
  6. VIDEX [Concomitant]
     Dates: start: 19991101
  7. ZERIT [Concomitant]
     Dates: start: 19991101
  8. SUSTIVA [Concomitant]
     Dates: start: 19991101
  9. CODEINE [Concomitant]
     Dates: start: 20001030
  10. COMPAZINE [Concomitant]
     Dates: start: 20001001
  11. OXYCONTIN [Concomitant]
     Dates: start: 20010205
  12. PEPCID [Concomitant]
     Dates: start: 20010305
  13. MULTI-VITAMIN [Concomitant]
     Dates: start: 20010101
  14. DOXYCYCLINE [Concomitant]
  15. CLEOCIN GEL [Concomitant]
  16. TYLENOL W/ CODEINE NO. 3 [Concomitant]
  17. MULTI-VITAMINS [Concomitant]

REACTIONS (5)
  - ACUTE PRERENAL FAILURE [None]
  - CONVULSION [None]
  - DEHYDRATION [None]
  - NAUSEA [None]
  - VOMITING [None]
